FAERS Safety Report 15281212 (Version 1)
Quarter: 2018Q3

REPORT INFORMATION
  Report Type: Spontaneous
  Country: US (occurrence: US)
  Receive Date: 20180815
  Receipt Date: 20180815
  Transmission Date: 20181010
  Serious: No
  Sender: FDA-Public Use
  Company Number: US-MYLANLABS-2018M1058043

PATIENT
  Age: 56 Year
  Sex: Female

DRUGS (1)
  1. CLONAZEPAM TABLETS, USP [Suspect]
     Active Substance: CLONAZEPAM
     Indication: SEIZURE
     Dosage: 0.25 MG, QID
     Dates: start: 20180529, end: 20180529

REACTIONS (9)
  - Balance disorder [Unknown]
  - Memory impairment [Unknown]
  - Insomnia [Unknown]
  - Wrong technique in product usage process [Unknown]
  - Visual impairment [Unknown]
  - Nausea [Unknown]
  - Headache [Unknown]
  - Migraine [Unknown]
  - Dizziness [Unknown]

NARRATIVE: CASE EVENT DATE: 20180529
